FAERS Safety Report 11127896 (Version 1)
Quarter: 2015Q2

REPORT INFORMATION
  Report Type: Spontaneous
  Country: IT (occurrence: None)
  Receive Date: 20150519
  Receipt Date: 20150519
  Transmission Date: 20150821
  Serious: Yes (Death)
  Sender: FDA-Public Use
  Company Number: IT-2015-2057

PATIENT
  Age: 6 Year
  Sex: Male

DRUGS (3)
  1. THIAMINE [Concomitant]
     Active Substance: THIAMINE
  2. VINORELBINE INN (VINORELBINE TARTRATE) SOLUTION FOR INJECTION [Suspect]
     Active Substance: VINORELBINE TARTRATE
     Indication: GLIOMA
  3. NIMOTUZUMAB [Concomitant]
     Active Substance: NIMOTUZUMAB

REACTIONS (4)
  - Glioma [None]
  - Malignant neoplasm progression [None]
  - Off label use [None]
  - Wernicke^s encephalopathy [None]
